FAERS Safety Report 17932585 (Version 1)
Quarter: 2020Q2

REPORT INFORMATION
  Report Type: Spontaneous
  Country: CA (occurrence: CA)
  Receive Date: 20200624
  Receipt Date: 20200624
  Transmission Date: 20200714
  Serious: Yes (Other)
  Sender: FDA-Public Use
  Company Number: CA-ROCHE-2628775

PATIENT
  Sex: Male
  Weight: 126 kg

DRUGS (1)
  1. OCREVUS [Suspect]
     Active Substance: OCRELIZUMAB
     Indication: MULTIPLE SCLEROSIS
     Dosage: ONCE IN 6 MONTHS
     Route: 042
     Dates: start: 20180518

REACTIONS (1)
  - Type 2 diabetes mellitus [Not Recovered/Not Resolved]
